FAERS Safety Report 9472447 (Version 1)
Quarter: 2013Q3

REPORT INFORMATION
  Report Type: Spontaneous
  Country: US (occurrence: None)
  Receive Date: 20130821
  Receipt Date: 20130821
  Transmission Date: 20140515
  Serious: Yes (Other)
  Sender: FDA-Public Use
  Company Number: None

PATIENT
  Age: 65 Year
  Sex: Female
  Weight: 93.9 kg

DRUGS (2)
  1. LEVOFLOXACIN [Suspect]
     Indication: SINUSITIS
     Route: 048
     Dates: start: 20130807, end: 20130818
  2. LEVOFLOXACIN [Suspect]
     Indication: SUBCUTANEOUS ABSCESS
     Route: 048
     Dates: start: 20130807, end: 20130818

REACTIONS (7)
  - Arthralgia [None]
  - Dysstasia [None]
  - Gait disturbance [None]
  - Asthenia [None]
  - Malaise [None]
  - Gait disturbance [None]
  - Pain [None]
